FAERS Safety Report 16503736 (Version 1)
Quarter: 2019Q3

REPORT INFORMATION
  Report Type: Spontaneous
  Country: US (occurrence: US)
  Receive Date: 20190701
  Receipt Date: 20190701
  Transmission Date: 20191004
  Serious: No
  Sender: FDA-Public Use
  Company Number: US-GALDERMA-US18052768

PATIENT
  Age: 68 Year
  Sex: Male

DRUGS (3)
  1. KLONOPIN [Concomitant]
     Active Substance: CLONAZEPAM
     Indication: ANXIETY
  2. ORACEA [Suspect]
     Active Substance: DOXYCYCLINE
     Indication: ACNE
     Dosage: 40MG
     Route: 048
     Dates: start: 20181218
  3. ADAPALANE 0.3% [Concomitant]
     Indication: PRODUCT USED FOR UNKNOWN INDICATION
     Dosage: 0.3%

REACTIONS (5)
  - Pruritus [Recovered/Resolved]
  - Erythema [Recovered/Resolved]
  - Inappropriate schedule of product administration [Recovered/Resolved]
  - Product use in unapproved indication [Recovered/Resolved]
  - Overdose [Recovered/Resolved]

NARRATIVE: CASE EVENT DATE: 20181218
